FAERS Safety Report 14568209 (Version 1)
Quarter: 2018Q1

REPORT INFORMATION
  Report Type: Spontaneous
  Country: US (occurrence: US)
  Receive Date: 20180223
  Receipt Date: 20180223
  Transmission Date: 20180509
  Serious: No
  Sender: FDA-Public Use
  Company Number: US-IMPAX LABORATORIES, INC-2017-IPXL-03107

PATIENT
  Age: 5 Year

DRUGS (2)
  1. EMVERM [Suspect]
     Active Substance: MEBENDAZOLE
     Indication: NEOPLASM MALIGNANT
     Dosage: 100 MG, 15 TABLETS PER DAY
     Route: 048
  2. EMVERM [Suspect]
     Active Substance: MEBENDAZOLE
     Indication: PRODUCT USE IN UNAPPROVED INDICATION

REACTIONS (2)
  - Product use in unapproved indication [Unknown]
  - Prescribed overdose [Unknown]
